FAERS Safety Report 11192985 (Version 1)
Quarter: 2015Q2

REPORT INFORMATION
  Report Type: Spontaneous
  Country: US (occurrence: None)
  Receive Date: 20150615
  Receipt Date: 20150615
  Transmission Date: 20150821
  Serious: Yes (Hospitalization, Disabling)
  Sender: FDA-Public Use
  Company Number: None

PATIENT
  Age: 82 Year
  Sex: Female
  Weight: 95.26 kg

DRUGS (6)
  1. CIPROFLOXACIN HCL 500MG [Suspect]
     Active Substance: CIPROFLOXACIN HYDROCHLORIDE
     Indication: URINARY TRACT INFECTION
     Route: 048
     Dates: start: 20150217, end: 20150226
  2. METOPROLOL TARTRATE. [Concomitant]
     Active Substance: METOPROLOL TARTRATE
  3. VITAMINS [Concomitant]
     Active Substance: VITAMINS
  4. TUMS [Concomitant]
     Active Substance: CALCIUM CARBONATE
  5. PEPTO-BISMOL [Concomitant]
     Active Substance: BISMUTH SUBSALICYLATE\CALCIUM CARBONATE
  6. METRONIDAZOLE. [Suspect]
     Active Substance: METRONIDAZOLE

REACTIONS (11)
  - Diarrhoea [None]
  - Hypophagia [None]
  - Vomiting [None]
  - Bedridden [None]
  - Malaise [None]
  - Fatigue [None]
  - Decreased appetite [None]
  - Arthropathy [None]
  - Gait disturbance [None]
  - Dizziness [None]
  - Liver injury [None]
